FAERS Safety Report 5622531-9 (Version None)
Quarter: 2008Q1

REPORT INFORMATION
  Report Type: 
  Country: None (occurrence: None)
  Receive Date: 20080211
  Receipt Date: 20080204
  Transmission Date: 20080703
  Serious: Yes (Hospitalization)
  Sender: FDA-Public Use
  Company Number: PFIZER INC-2008011154

PATIENT
  Age: 69 Year
  Sex: Male

DRUGS (2)
  1. IRINOTECAN HCL [Suspect]
     Indication: SMALL CELL LUNG CANCER STAGE UNSPECIFIED
  2. CISPLATIN [Suspect]

REACTIONS (5)
  - ACIDOSIS [None]
  - GASTROINTESTINAL TOXICITY [None]
  - NEUTROPENIA [None]
  - PNEUMATOSIS INTESTINALIS [None]
  - PORTAL VENOUS GAS [None]
